FAERS Safety Report 7034036-1 (Version None)
Quarter: 2010Q4

REPORT INFORMATION
  Report Type: 
  Country: None (occurrence: None)
  Receive Date: 20101007
  Receipt Date: 20100922
  Transmission Date: 20110411
  Serious: Yes (Hospitalization, Other)
  Sender: FDA-Public Use
  Company Number: PHEH2006US12308

PATIENT
  Sex: Female

DRUGS (6)
  1. ZOMETA [Suspect]
     Indication: BONE DENSITY DECREASED
  2. HYDROCODONE [Concomitant]
  3. DURAGESIC-100 [Concomitant]
  4. MULTI-VITAMINS [Concomitant]
  5. ASCORBIC ACID [Concomitant]
  6. CALCIUM [Concomitant]

REACTIONS (28)
  - ANAEMIA [None]
  - ANXIETY [None]
  - APHAGIA [None]
  - ASTHENIA [None]
  - BONE LESION [None]
  - CELLULITIS [None]
  - CHILLS [None]
  - DECREASED APPETITE [None]
  - DIABETES MELLITUS [None]
  - HIP ARTHROPLASTY [None]
  - HYPOKALAEMIA [None]
  - HYPOTENSION [None]
  - INFECTION [None]
  - INJURY [None]
  - MALIGNANT NEOPLASM PROGRESSION [None]
  - MALNUTRITION [None]
  - NECK MASS [None]
  - ORAL PAIN [None]
  - OSTEONECROSIS OF JAW [None]
  - PAIN [None]
  - PAIN IN JAW [None]
  - PARANASAL SINUS HYPERSECRETION [None]
  - PHYSICAL DISABILITY [None]
  - PYREXIA [None]
  - SEPSIS [None]
  - THROMBOCYTOPENIA [None]
  - TOOTH LOSS [None]
  - URINARY TRACT INFECTION [None]
